FAERS Safety Report 23639273 (Version 1)
Quarter: 2024Q1

REPORT INFORMATION
  Report Type: Spontaneous
  Country: US (occurrence: US)
  Receive Date: 20240316
  Receipt Date: 20240316
  Transmission Date: 20240409
  Serious: Yes (Other)
  Sender: FDA-Public Use
  Company Number: US-AMGEN-USASP2024049483

PATIENT
  Sex: Female

DRUGS (2)
  1. OTEZLA [Suspect]
     Active Substance: APREMILAST
     Indication: Product used for unknown indication
     Dosage: UNK
     Route: 065
  2. REMICADE [Suspect]
     Active Substance: INFLIXIMAB
     Indication: Product used for unknown indication
     Dosage: UNK
     Route: 065

REACTIONS (6)
  - Ovarian cyst ruptured [Recovering/Resolving]
  - Heavy menstrual bleeding [Recovering/Resolving]
  - Libido disorder [Not Recovered/Not Resolved]
  - Arthralgia [Unknown]
  - Polymenorrhoea [Recovering/Resolving]
  - Ovarian adhesion [Unknown]
